FAERS Safety Report 6508716-8 (Version None)
Quarter: 2009Q4

REPORT INFORMATION
  Report Type: 
  Country: None (occurrence: None)
  Receive Date: 20091221
  Receipt Date: 20081224
  Transmission Date: 20100525
  Serious: No
  Sender: FDA-Public Use
  Company Number: US-ASTRAZENECA-2008UW28758

PATIENT
  Age: 60 Year
  Sex: Male
  Weight: 113.4 kg

DRUGS (3)
  1. CRESTOR [Suspect]
     Indication: HYPERCHOLESTEROLAEMIA
     Dosage: 20-40 MG
     Route: 048
     Dates: start: 20050101, end: 20081001
  2. PLAVIX [Concomitant]
  3. MUSCLE RELAXANT [Concomitant]
     Dosage: PRN

REACTIONS (3)
  - ARTHRALGIA [None]
  - MUSCLE FATIGUE [None]
  - PAIN IN EXTREMITY [None]
